FAERS Safety Report 4278006-5 (Version None)
Quarter: 2004Q1

REPORT INFORMATION
  Report Type: 
  Country: None (occurrence: None)
  Receive Date: 20040121
  Receipt Date: 20031229
  Transmission Date: 20041129
  Serious: Yes (Hospitalization, Other)
  Sender: FDA-Public Use
  Company Number: 001-0719-M0200130

PATIENT
  Age: 46 Year
  Sex: Male
  Weight: 73.4827 kg

DRUGS (52)
  1. LOPID [Suspect]
     Indication: HYPERTRIGLYCERIDAEMIA
     Dosage: 1200 MG (MG, TWICE DAILY), ORAL
     Route: 048
     Dates: start: 19931227, end: 20010506
  2. LIPITOR [Suspect]
     Indication: HYPERLIPIDAEMIA
     Dates: start: 19961201
  3. ZOLOFT [Suspect]
     Indication: DEPRESSION
     Dates: start: 19960101, end: 19961201
  4. CERIVASTATIN SODIUM (CERIVASTATIN SODIUM) [Suspect]
     Indication: ILL-DEFINED DISORDER
     Dosage: 0.8 MG (DAILY), ORAL
     Route: 048
     Dates: start: 20010409, end: 20010506
  5. LISINOPRIL [Suspect]
     Indication: ILL-DEFINED DISORDER
     Dosage: 10 MG (DAILY),
     Dates: end: 19940201
  6. RAMIPRIL [Suspect]
     Indication: ILL-DEFINED DISORDER
     Dosage: 5 MG (DAILY)
     Dates: start: 19940201, end: 19940201
  7. CALCIUM GLUCONATE [Concomitant]
  8. ACETYLSALICYLIC ACID SRT [Concomitant]
  9. LISINOPRIL [Concomitant]
  10. WARFARIN SODIUM [Concomitant]
  11. GLIPIZIDE [Concomitant]
  12. TACROLIMUS (TACROLIMUS) [Concomitant]
  13. PYRIDOXINE HCL TAB [Concomitant]
  14. MAGNESIUM OXIDE (MAGNESIUM OXIDE) [Concomitant]
  15. POTASSIUM CHLORIDE [Concomitant]
  16. METOPROLOL SUCCINATE [Concomitant]
  17. FOLIC ACID [Concomitant]
  18. GLYBURIDE [Concomitant]
  19. LISINOPRIL [Concomitant]
  20. DIGOXIN [Concomitant]
  21. NITROGLYCERIN [Concomitant]
  22. OMEPRAZOLE [Concomitant]
  23. LANSOPRAZOLE [Concomitant]
  24. DIAZEPAM [Concomitant]
  25. CLOPIDOGREL BISULFATE [Concomitant]
  26. CARVEDILOL [Concomitant]
  27. CYCLOSPORINE [Concomitant]
  28. QUININE SULFATE (QUININE SULFATE) [Concomitant]
  29. NICOTINIC ACID [Concomitant]
  30. KAPSOVIT (ERGOCALCIFEROL, ASCORBID ACID, THIAMINE HYDROCHLORIDE, RETIN [Concomitant]
  31. PIOGLITAZONE HCL [Concomitant]
  32. INSULIN HUMAN INFECTION, ISOPHANE (INSULIN HUMAN INJECTION, ISOPHANE) [Concomitant]
  33. CERTAGEN (FOLIC ACID, FERROUS FUMARATE, VITAMIN NOS, MINERALS NOS) [Concomitant]
  34. PREDNISONE [Concomitant]
  35. OXYCOCET (PARACETAMOL, OXYCODONE HYDROCHLORIDE) [Concomitant]
  36. TRIOBE (FOLIC ACID, PYRIDOXINE, CYANOCOBALAMIN) [Concomitant]
  37. CAPTOPRIL [Concomitant]
  38. FUROSEMIDE [Concomitant]
  39. IBUPROFEN [Concomitant]
  40. DOCUSATE SODIUM (DOCUSATE SODIUM) [Concomitant]
  41. MULTIVITAMINS (ERGOCALCIFEROL, ASCORBIC ACID, FOLIC ACID, THIAMINE HYD [Concomitant]
  42. MYCOPHENOLATE MOFETIL (MYCOPHENOLATE MOFETIL) [Concomitant]
  43. PRAVASTATIN SODIUM [Concomitant]
  44. BACTRIM [Concomitant]
  45. DILTIAZEM HYDROCHLORIDE [Concomitant]
  46. CIMETIDINE [Concomitant]
  47. ENALAPRIL MALEATE [Concomitant]
  48. AZATHIOPRINE [Concomitant]
  49. METOLAZONE [Concomitant]
  50. TRIAZOLAM [Concomitant]
  51. ISOSORBIDE MONONITRATE [Concomitant]
  52. VENLAFAXINE HCL [Concomitant]

REACTIONS (18)
  - CARDIAC OUTPUT DECREASED [None]
  - CONGESTIVE CARDIOMYOPATHY [None]
  - DRUG ERUPTION [None]
  - HEADACHE [None]
  - HEART TRANSPLANT [None]
  - HYPERSENSITIVITY [None]
  - HYPERTENSION [None]
  - LEFT VENTRICULAR FAILURE [None]
  - NASAL CONGESTION [None]
  - PAIN [None]
  - PHARYNGITIS STREPTOCOCCAL [None]
  - PHARYNGOLARYNGEAL PAIN [None]
  - PRURITUS [None]
  - RASH ERYTHEMATOUS [None]
  - RHABDOMYOLYSIS [None]
  - RHINORRHOEA [None]
  - SINUSITIS [None]
  - STOMATITIS [None]
